FAERS Safety Report 4888110-6 (Version None)
Quarter: 2006Q1

REPORT INFORMATION
  Report Type: 
  Country: None (occurrence: None)
  Receive Date: 20060123
  Receipt Date: 20060110
  Transmission Date: 20060701
  Serious: Yes (Hospitalization)
  Sender: FDA-Public Use
  Company Number: US-JNJFOC-20051202505

PATIENT
  Sex: Female
  Weight: 63.5 kg

DRUGS (6)
  1. REMICADE [Suspect]
     Dosage: HAS RECEIVED 35 INFUSIONS
     Route: 042
  2. REMICADE [Suspect]
     Indication: RHEUMATOID ARTHRITIS
     Route: 042
  3. BENADRYL [Concomitant]
     Indication: PREMEDICATION
  4. METHOTREXATE [Concomitant]
     Indication: RHEUMATOID ARTHRITIS
     Dosage: 8 TABS/WEEK
  5. BLOOD PRESSURE MEDICATION [Concomitant]
  6. BLOOD THINNER [Concomitant]

REACTIONS (2)
  - COSTOCHONDRITIS [None]
  - DRUG ADMINISTRATION ERROR [None]
